FAERS Safety Report 4484976-2 (Version None)
Quarter: 2004Q3

REPORT INFORMATION
  Report Type: 
  Country: None (occurrence: None)
  Receive Date: 20040921
  Receipt Date: 20030929
  Transmission Date: 20050211
  Serious: Yes (Other)
  Sender: FDA-Public Use
  Company Number: 163-20785-03090764

PATIENT
  Age: 40 Year
  Sex: Male
  Weight: 87.5 kg

DRUGS (4)
  1. THALOMID [Suspect]
     Indication: GLIOBLASTOMA MULTIFORME
     Dosage: 200 MG, DAILY, ORAL
     Route: 048
     Dates: start: 20030905, end: 20030929
  2. ETOPOSIDE [Suspect]
     Indication: GLIOBLASTOMA MULTIFORME
     Dosage: 50 MG, DAILY, ORAL
     Route: 048
     Dates: end: 20030923
  3. CELECOXIB (CELECOXIB) [Suspect]
     Indication: GLIOBLASTOMA MULTIFORME
     Dosage: 400 MG, BID, ORAL
     Route: 048
     Dates: end: 20030923
  4. DECADRON [Concomitant]

REACTIONS (8)
  - CONSTIPATION [None]
  - DEEP VEIN THROMBOSIS [None]
  - DEHYDRATION [None]
  - HYPONATRAEMIA [None]
  - LEUKOPENIA [None]
  - NEUTROPENIA [None]
  - PAIN [None]
  - THROMBOCYTOPENIA [None]
